FAERS Safety Report 10996811 (Version 1)
Quarter: 2015Q2

REPORT INFORMATION
  Report Type: Spontaneous
  Country: US (occurrence: None)
  Receive Date: 20150407
  Receipt Date: 20150407
  Transmission Date: 20150821
  Serious: No
  Sender: FDA-Public Use
  Company Number: None

PATIENT
  Sex: Male

DRUGS (6)
  1. TEMODAR [Concomitant]
     Active Substance: TEMOZOLOMIDE
  2. ONDANSETRON [Concomitant]
     Active Substance: ONDANSETRON
  3. VIMPAT [Concomitant]
     Active Substance: LACOSAMIDE
  4. TEMODAR [Suspect]
     Active Substance: TEMOZOLOMIDE
     Indication: BRAIN NEOPLASM MALIGNANT
     Dosage: QD FOR 5DS
     Route: 048
     Dates: start: 20130919
  5. COLACE [Concomitant]
     Active Substance: DOCUSATE SODIUM
  6. TEMODAR [Suspect]
     Active Substance: TEMOZOLOMIDE
     Indication: BRAIN NEOPLASM MALIGNANT
     Dosage: QD DOR 5DS
     Route: 048
     Dates: start: 20130919

REACTIONS (1)
  - Fatigue [None]
